FAERS Safety Report 9355449 (Version 1)
Quarter: 2013Q2

REPORT INFORMATION
  Report Type: Spontaneous
  Country: DE (occurrence: DE)
  Receive Date: 20130619
  Receipt Date: 20130619
  Transmission Date: 20140414
  Serious: Yes (Hospitalization, Congenital Anomaly)
  Sender: FDA-Public Use
  Company Number: DE-TEVA-410728GER

PATIENT
  Age: 0 Year
  Sex: Female

DRUGS (4)
  1. FLUOXETIN [Suspect]
     Route: 064
  2. METHYLPHENIDAT [Suspect]
     Route: 064
  3. DIPIPERON [Suspect]
     Route: 064
  4. FOLIO FORTE [Concomitant]
     Route: 064

REACTIONS (4)
  - Atrial septal defect [Recovered/Resolved]
  - Neonatal respiratory distress syndrome [Recovered/Resolved]
  - Hypoglycaemia neonatal [Recovered/Resolved]
  - Patent ductus arteriosus [Recovered/Resolved]
